FAERS Safety Report 8188337-4 (Version None)
Quarter: 2012Q1

REPORT INFORMATION
  Report Type: 
  Country: None (occurrence: None)
  Receive Date: 20120221
  Receipt Date: 20110412
  Transmission Date: 20120608
  Serious: Yes (Hospitalization)
  Sender: FDA-Public Use
  Company Number: PHHY2011US31165

PATIENT
  Age: 74 Year
  Sex: Female

DRUGS (5)
  1. ALBUTEROL [Concomitant]
  2. MUCINEX [Concomitant]
  3. TOBI [Suspect]
     Indication: BRONCHIECTASIS
     Dosage: 300 MG,BID Q 10 DAYS,INHALATION
     Route: 055
     Dates: start: 20101116, end: 20110327
  4. TOBI [Suspect]
     Indication: PSEUDOMONAS INFECTION
     Dosage: 300 MG,BID Q 10 DAYS,INHALATION
     Route: 055
     Dates: start: 20101116, end: 20110327
  5. OXYGEN THERAPY (NO INGREDIENTS/SUBSTANCES) [Concomitant]

REACTIONS (1)
  - PNEUMONIA [None]
